FAERS Safety Report 13272491 (Version 1)
Quarter: 2017Q1

REPORT INFORMATION
  Report Type: Spontaneous
  Country: US (occurrence: US)
  Receive Date: 20170225
  Receipt Date: 20170225
  Transmission Date: 20170428
  Serious: No
  Sender: FDA-Public Use
  Company Number: None

PATIENT
  Age: 56 Year
  Sex: Female
  Weight: 60.75 kg

DRUGS (6)
  1. PROPOFOL. [Suspect]
     Active Substance: PROPOFOL
     Indication: COLONOSCOPY
     Dates: start: 20170224, end: 20170224
  2. COQ10 [Concomitant]
     Active Substance: UBIDECARENONE
  3. PROPOFOL. [Suspect]
     Active Substance: PROPOFOL
     Indication: ANAESTHESIA
     Dates: start: 20170224, end: 20170224
  4. FISH OIL [Concomitant]
     Active Substance: FISH OIL
  5. VITAMIN D SUPPLEMENTS [Concomitant]
  6. CALCIUM [Concomitant]
     Active Substance: CALCIUM

REACTIONS (5)
  - Pain [None]
  - Pyrexia [None]
  - Chills [None]
  - Headache [None]
  - Post procedural complication [None]

NARRATIVE: CASE EVENT DATE: 20170224
